FAERS Safety Report 9287036 (Version 2)
Quarter: 2013Q2

REPORT INFORMATION
  Report Type: Spontaneous
  Country: IT (occurrence: IT)
  Receive Date: 20130513
  Receipt Date: 20130619
  Transmission Date: 20140414
  Serious: Yes (Hospitalization, Other)
  Sender: FDA-Public Use
  Company Number: IT-ELI_LILLY_AND_COMPANY-IT201305001298

PATIENT
  Age: 23 Year
  Sex: Female

DRUGS (3)
  1. HUMALOG LISPRO [Suspect]
     Dosage: 4 IU, TID
     Route: 058
  2. HUMALOG LISPRO [Suspect]
     Dosage: 50 IU, SINGLE
     Route: 058
     Dates: start: 20130430, end: 20130430
  3. LANTUS [Concomitant]
     Dosage: 4 IU, QD
     Route: 058

REACTIONS (3)
  - Intentional self-injury [Recovered/Resolved]
  - Hypoglycaemia [Recovered/Resolved]
  - Drug abuse [Unknown]
